FAERS Safety Report 22864354 (Version 2)
Quarter: 2024Q3

REPORT INFORMATION
  Report Type: Spontaneous
  Country: PT (occurrence: PT)
  Receive Date: 20230825
  Receipt Date: 20240807
  Transmission Date: 20241016
  Serious: Yes (Hospitalization, Other)
  Sender: TAKEDA
  Company Number: PT-TAKEDA-2023TUS078133

PATIENT
  Age: 15 Year
  Sex: Male

DRUGS (35)
  1. HUMAN IMMUNOGLOBULIN G [Suspect]
     Active Substance: HUMAN IMMUNOGLOBULIN G
     Indication: Encephalitis
     Dosage: UNK UNK, MONTHLY
     Route: 042
  2. HUMAN IMMUNOGLOBULIN G [Suspect]
     Active Substance: HUMAN IMMUNOGLOBULIN G
     Indication: Extragonadal primary seminoma (pure)
     Dosage: UNK
     Route: 042
  3. HUMAN IMMUNOGLOBULIN G [Suspect]
     Active Substance: HUMAN IMMUNOGLOBULIN G
     Indication: Epilepsia partialis continua
  4. RITUXIMAB [Suspect]
     Active Substance: RITUXIMAB
     Indication: Encephalitis
     Dosage: UNK
     Route: 042
  5. RITUXIMAB [Suspect]
     Active Substance: RITUXIMAB
     Indication: Extragonadal primary seminoma (pure)
  6. RITUXIMAB [Suspect]
     Active Substance: RITUXIMAB
     Indication: Epilepsia partialis continua
  7. METHYLPREDNISOLONE [Suspect]
     Active Substance: METHYLPREDNISOLONE
     Indication: Epilepsia partialis continua
     Dosage: 1 GRAM
     Route: 042
  8. METHYLPREDNISOLONE [Suspect]
     Active Substance: METHYLPREDNISOLONE
     Indication: Extragonadal primary seminoma (pure)
  9. METHYLPREDNISOLONE [Suspect]
     Active Substance: METHYLPREDNISOLONE
     Indication: Encephalitis
  10. PREDNISONE [Suspect]
     Active Substance: PREDNISONE
     Indication: Epilepsia partialis continua
     Dosage: 40 MILLIGRAM
     Route: 048
  11. PREDNISONE [Suspect]
     Active Substance: PREDNISONE
     Indication: Encephalitis
  12. PREDNISONE [Suspect]
     Active Substance: PREDNISONE
     Indication: Extragonadal primary seminoma (pure)
  13. AZATHIOPRINE [Suspect]
     Active Substance: AZATHIOPRINE
     Indication: Encephalitis
     Dosage: 150 MILLIGRAM, QD
     Route: 065
  14. AZATHIOPRINE [Suspect]
     Active Substance: AZATHIOPRINE
     Indication: Epilepsia partialis continua
  15. AZATHIOPRINE [Suspect]
     Active Substance: AZATHIOPRINE
     Indication: Extragonadal primary seminoma (pure)
  16. VALPROIC ACID [Suspect]
     Active Substance: VALPROIC ACID
     Indication: Extragonadal primary seminoma (pure)
     Dosage: UNK
     Route: 065
  17. VALPROIC ACID [Suspect]
     Active Substance: VALPROIC ACID
     Indication: Epilepsia partialis continua
  18. VALPROIC ACID [Suspect]
     Active Substance: VALPROIC ACID
     Indication: Encephalitis
  19. LACOSAMIDE [Suspect]
     Active Substance: LACOSAMIDE
     Indication: Encephalitis
     Dosage: 200 MILLIGRAM, BID
     Route: 065
  20. LACOSAMIDE [Suspect]
     Active Substance: LACOSAMIDE
     Indication: Extragonadal primary seminoma (pure)
  21. LACOSAMIDE [Suspect]
     Active Substance: LACOSAMIDE
     Indication: Epilepsia partialis continua
  22. PERAMPANEL [Suspect]
     Active Substance: PERAMPANEL
     Indication: Epilepsia partialis continua
     Dosage: 8 MILLIGRAM
     Route: 065
  23. PERAMPANEL [Suspect]
     Active Substance: PERAMPANEL
     Indication: Encephalitis
  24. CLOBAZAM [Suspect]
     Active Substance: CLOBAZAM
     Indication: Epilepsia partialis continua
     Dosage: 20 MILLIGRAM
     Route: 065
  25. CLOBAZAM [Suspect]
     Active Substance: CLOBAZAM
     Indication: Extragonadal primary seminoma (pure)
  26. CLOBAZAM [Suspect]
     Active Substance: CLOBAZAM
     Indication: Encephalitis
  27. METHYLPREDNISOLONE SODIUM SUCCINATE [Suspect]
     Active Substance: METHYLPREDNISOLONE SODIUM SUCCINATE
     Indication: Epilepsia partialis continua
     Dosage: 1 GRAM
     Route: 042
  28. METHYLPREDNISOLONE SODIUM SUCCINATE [Suspect]
     Active Substance: METHYLPREDNISOLONE SODIUM SUCCINATE
     Indication: Extragonadal primary seminoma (pure)
  29. METHYLPREDNISOLONE SODIUM SUCCINATE [Suspect]
     Active Substance: METHYLPREDNISOLONE SODIUM SUCCINATE
     Indication: Encephalitis
  30. PHENOBARBITAL [Suspect]
     Active Substance: PHENOBARBITAL
     Indication: Epilepsia partialis continua
     Dosage: 100 MILLIGRAM, BID
     Route: 065
  31. CLONAZEPAM [Suspect]
     Active Substance: CLONAZEPAM
     Indication: Encephalitis
     Dosage: 0.25 MILLIGRAM, BID
     Route: 065
  32. CLONAZEPAM [Suspect]
     Active Substance: CLONAZEPAM
     Indication: Epilepsia partialis continua
  33. CLONAZEPAM [Suspect]
     Active Substance: CLONAZEPAM
     Indication: Extragonadal primary seminoma (pure)
  34. FELBAMATE [Suspect]
     Active Substance: FELBAMATE
     Indication: Epilepsia partialis continua
     Dosage: 1800 MILLIGRAM, BID
     Route: 065
  35. ESLICARBAZEPINE [Suspect]
     Active Substance: ESLICARBAZEPINE
     Indication: Epilepsia partialis continua
     Dosage: 1600 MILLIGRAM, QD
     Route: 065

REACTIONS (4)
  - Drug ineffective for unapproved indication [Unknown]
  - Disease progression [Unknown]
  - Off label use [Unknown]
  - Drug ineffective [Unknown]
